FAERS Safety Report 6108022-X (Version None)
Quarter: 2009Q1

REPORT INFORMATION
  Report Type: 
  Country: None (occurrence: None)
  Receive Date: 20090309
  Receipt Date: 20090226
  Transmission Date: 20090719
  Serious: Yes (Other)
  Sender: FDA-Public Use
  Company Number: US-JNJFOC-20090206700

PATIENT
  Age: 26 Year
  Sex: Female

DRUGS (1)
  1. DOXIL [Suspect]
     Indication: SARCOMA
     Route: 042

REACTIONS (2)
  - OFF LABEL USE [None]
  - SARCOMA [None]
